FAERS Safety Report 17153513 (Version 2)
Quarter: 2019Q4

REPORT INFORMATION
  Report Type: Report from Study
  Country: None (occurrence: KR)
  Receive Date: 20191213
  Receipt Date: 20191223
  Transmission Date: 20200122
  Serious: Yes (Hospitalization)
  Sender: FDA-Public Use
  Company Number: KR-ABBVIE-19P-090-3182693-00

PATIENT
  Age: 67 Year
  Sex: Female
  Weight: 54 kg

DRUGS (21)
  1. UPADACITINIB [Suspect]
     Active Substance: UPADACITINIB
     Indication: RHEUMATOID ARTHRITIS
     Route: 048
     Dates: start: 20171212, end: 20180821
  2. FOLIC ACID. [Concomitant]
     Active Substance: FOLIC ACID
     Indication: VITAMIN SUPPLEMENTATION
     Route: 048
     Dates: start: 20150304, end: 20191204
  3. CINALONG [Concomitant]
     Indication: HYPERTENSION
     Route: 048
     Dates: start: 20170112
  4. METHYLON [Concomitant]
     Active Substance: METHYLPREDNISOLONE
     Indication: RHEUMATOID ARTHRITIS
     Route: 048
     Dates: start: 20180404, end: 20191204
  5. LIPIDIL SUPRA [Concomitant]
     Active Substance: FENOFIBRATE
     Indication: HYPERLIPIDAEMIA
     Route: 048
     Dates: start: 20181025
  6. FORSTEO [Concomitant]
     Active Substance: TERIPARATIDE
     Indication: SPINAL COMPRESSION FRACTURE
     Dosage: 250 UG
     Route: 058
     Dates: start: 20190814, end: 20191203
  7. DILATREND [Concomitant]
     Active Substance: CARVEDILOL
     Indication: HYPERTENSION
     Route: 048
     Dates: start: 20170112
  8. PRITOR [Concomitant]
     Indication: HYPERTENSION
     Route: 048
     Dates: start: 20170112
  9. MELOCOX [Concomitant]
     Indication: RHEUMATOID ARTHRITIS
     Route: 048
     Dates: start: 20150213, end: 20191204
  10. PLACEBO [Suspect]
     Active Substance: UNSPECIFIED INGREDIENT
     Indication: RHEUMATOID ARTHRITIS
     Route: 065
     Dates: start: 20170615, end: 20171211
  11. PREGREL [Concomitant]
     Indication: HYPERTENSION
     Route: 048
     Dates: start: 20170112
  12. RISENEX PLUS [Concomitant]
     Indication: OSTEOPOROSIS
     Route: 048
     Dates: start: 20181211
  13. METHOTREXATE. [Concomitant]
     Active Substance: METHOTREXATE
     Route: 048
     Dates: start: 20190207, end: 20191204
  14. TARGIN PR [Concomitant]
     Indication: SCIATICA
     Dosage: 10/5 MG
     Route: 048
     Dates: start: 20191031, end: 20191203
  15. CEREBREX [Concomitant]
     Active Substance: CALCIUM GLYCEROPHOSPHATE\CALCIUM PHOSPHATE\GLUTAMIC ACID\VITAMIN B
     Indication: SCIATICA
     Route: 048
     Dates: start: 20191111, end: 20191203
  16. OPALMON [Concomitant]
     Active Substance: LIMAPROST
     Indication: SPINAL STENOSIS
     Route: 048
     Dates: start: 20190717, end: 20191203
  17. ASPIRIN PROTECT [Concomitant]
     Active Substance: ASPIRIN
     Indication: HYPERTENSION
     Route: 048
     Dates: start: 20170112
  18. LIVALO [Concomitant]
     Active Substance: PITAVASTATIN CALCIUM
     Indication: HYPERLIPIDAEMIA
     Route: 048
     Dates: start: 20181025
  19. METHOTREXATE. [Concomitant]
     Active Substance: METHOTREXATE
     Indication: RHEUMATOID ARTHRITIS
     Route: 048
     Dates: start: 20150304, end: 20190206
  20. NEURONTIN [Concomitant]
     Active Substance: GABAPENTIN
     Indication: SCIATICA
     Route: 048
     Dates: start: 20191111, end: 20191203
  21. UPADACITINIB [Suspect]
     Active Substance: UPADACITINIB
     Indication: RHEUMATOID ARTHRITIS
     Route: 048
     Dates: start: 20180822, end: 20191203

REACTIONS (2)
  - Back pain [Not Recovered/Not Resolved]
  - Disseminated tuberculosis [Not Recovered/Not Resolved]

NARRATIVE: CASE EVENT DATE: 20191204
